FAERS Safety Report 15074916 (Version 1)
Quarter: 2018Q2

REPORT INFORMATION
  Report Type: Spontaneous
  Country: US (occurrence: US)
  Receive Date: 20180627
  Receipt Date: 20180627
  Transmission Date: 20180711
  Serious: Yes (Other)
  Sender: FDA-Public Use
  Company Number: US-SAOL THERAPEUTICS-2017SAO01464

PATIENT
  Age: 52 Year
  Sex: Male
  Weight: 97.51 kg

DRUGS (20)
  1. BACLOFEN. [Suspect]
     Active Substance: BACLOFEN
     Indication: SPINAL PAIN
     Dosage: 350 ?G, \DAY
     Route: 037
  2. TIROSINT [Concomitant]
     Active Substance: LEVOTHYROXINE SODIUM
     Dosage: 1 CAPSULES, 1X/DAY
     Route: 048
  3. MORPHINE [Suspect]
     Active Substance: MORPHINE
     Dosage: 1.501 MG, \DAY
     Route: 037
     Dates: start: 20171003
  4. BUPIVACAINE. [Suspect]
     Active Substance: BUPIVACAINE
     Dosage: 9.008 MG, \DAY
     Route: 037
     Dates: start: 20171003
  5. CETIRIZINE HYDROCHLORIDE. [Concomitant]
     Active Substance: CETIRIZINE HYDROCHLORIDE
     Dosage: 10 MG, 1X/DAY
     Route: 048
  6. FLUNISOLIDE. [Concomitant]
     Active Substance: FLUNISOLIDE
     Dosage: 4 DOSAGE UNITS, 1X/DAY
     Route: 045
  7. TRICOR [Concomitant]
     Active Substance: FENOFIBRATE
     Dosage: 145 MG, 1X/DAY
     Route: 048
  8. MORPHINE [Suspect]
     Active Substance: MORPHINE
     Dosage: 2.5 MG, \DAY
     Route: 037
  9. ANDROGEL [Concomitant]
     Active Substance: TESTOSTERONE
     Dosage: 4 DOSAGE UNITS, 1X/DAY
     Route: 062
  10. BUPIVACAINE. [Suspect]
     Active Substance: BUPIVACAINE
     Dosage: UNK
     Route: 037
  11. HYOSCYAMINE SULFATE ER [Concomitant]
     Dosage: 0.375 MG, 1X/DAY
     Route: 048
  12. MIRALAX [Concomitant]
     Active Substance: POLYETHYLENE GLYCOL 3350
     Dosage: 17 G, 1X/DAY
     Route: 048
  13. OXYCODONE [Concomitant]
     Active Substance: OXYCODONE
     Dosage: UNK, AS NEEDED
     Route: 048
  14. CYMBALTA [Concomitant]
     Active Substance: DULOXETINE HYDROCHLORIDE
     Dosage: 60 MG, 1X/DAY
     Route: 048
  15. BACLOFEN. [Suspect]
     Active Substance: BACLOFEN
     Indication: SPINAL PAIN
     Dosage: 300.3 ?G, \DAY
     Dates: start: 20170918
  16. DIVALPROEX SODIUM ER [Concomitant]
     Active Substance: DIVALPROEX SODIUM
     Dosage: 500 MG, 1X/DAY
     Route: 048
  17. LISINOPRIL. [Concomitant]
     Active Substance: LISINOPRIL
     Dosage: 40 MG, 1X/DAY
     Route: 048
  18. DILTIAZEM 24HR ER [Concomitant]
     Dosage: 240 MG, 1X/DAY
     Route: 048
  19. ABILIFY [Concomitant]
     Active Substance: ARIPIPRAZOLE
     Dosage: 5 MG, 1X/DAY
     Route: 048
  20. ANECREAM5 [Concomitant]

REACTIONS (11)
  - Drug withdrawal syndrome [Recovered/Resolved]
  - Influenza like illness [Recovered/Resolved]
  - Confusional state [Recovered/Resolved]
  - Somnolence [Recovered/Resolved]
  - Pain [Recovered/Resolved]
  - Procedural pain [Recovered/Resolved]
  - Feeling cold [Recovered/Resolved]
  - Dysgeusia [Recovered/Resolved]
  - Muscular weakness [Recovered/Resolved]
  - Off label use [Unknown]
  - Device failure [Recovered/Resolved]

NARRATIVE: CASE EVENT DATE: 20170911
